FAERS Safety Report 9859244 (Version 1)
Quarter: 2014Q1

REPORT INFORMATION
  Report Type: Spontaneous
  Country: US (occurrence: US)
  Receive Date: 20140131
  Receipt Date: 20140131
  Transmission Date: 20141002
  Serious: No
  Sender: FDA-Public Use
  Company Number: US-GILEAD-2012-0063112

PATIENT
  Age: 2 Year
  Sex: Male

DRUGS (3)
  1. CAYSTON [Suspect]
     Indication: PRODUCT USED FOR UNKNOWN INDICATION
  2. ATROVENT [Concomitant]
  3. ALBUTEROL                          /00139501/ [Concomitant]

REACTIONS (2)
  - Bronchospasm [Unknown]
  - Cough [Unknown]
